FAERS Safety Report 10744453 (Version 1)
Quarter: 2015Q1

REPORT INFORMATION
  Report Type: Spontaneous
  Country: US (occurrence: US)
  Receive Date: 20150128
  Receipt Date: 20150128
  Transmission Date: 20150721
  Serious: Yes (Hospitalization)
  Sender: FDA-Public Use
  Company Number: US-BAYER-2015-012158

PATIENT
  Sex: Female

DRUGS (2)
  1. AVELOX [Suspect]
     Active Substance: MOXIFLOXACIN HYDROCHLORIDE
     Indication: BRONCHITIS
     Dosage: UNK
     Dates: start: 20030218
  2. CLARINEX [Suspect]
     Active Substance: DESLORATADINE
     Indication: BRONCHITIS
     Dosage: UNK
     Route: 048
     Dates: start: 20030218

REACTIONS (5)
  - Dizziness [None]
  - Drug interaction [None]
  - Abdominal discomfort [None]
  - Hypotension [None]
  - Cyanosis [None]

NARRATIVE: CASE EVENT DATE: 20030218
